FAERS Safety Report 18916781 (Version 2)
Quarter: 2023Q4

REPORT INFORMATION
  Report Type: Report from Study
  Country: JP (occurrence: JP)
  Receive Date: 20210219
  Receipt Date: 20231214
  Transmission Date: 20240110
  Serious: Yes (Death, Life-Threatening, Hospitalization, Disabling, Other)
  Sender: FDA-Public Use
  Company Number: JP-PFIZER INC-2021138819

PATIENT
  Age: 84 Year
  Sex: Male
  Weight: 60.6 kg

DRUGS (10)
  1. VYNDAQEL [Suspect]
     Active Substance: TAFAMIDIS MEGLUMINE
     Indication: Cardiac amyloidosis
     Dosage: 80 MG, 1X/DAY AFTER MEAL
     Route: 048
     Dates: start: 20201225, end: 20210207
  2. ELIQUIS [Concomitant]
     Active Substance: APIXABAN
     Indication: Atrial fibrillation
     Dosage: 2.5 MG, 2X/DAY AFTER BREAKFAST AND DINNER
     Route: 048
     Dates: start: 2018, end: 20210207
  3. ROSUVASTATIN CALCIUM [Concomitant]
     Active Substance: ROSUVASTATIN CALCIUM
     Indication: Dyslipidaemia
     Dosage: 2.5 MG, 1X/DAY AFTER BREAKFAST
     Route: 048
     Dates: start: 20190927, end: 20210207
  4. AZOSEMIDE [Concomitant]
     Active Substance: AZOSEMIDE
     Indication: Cardiac failure chronic
     Dosage: 30 MG, 1X/DAY AFTER BREAKFAST
     Route: 048
     Dates: start: 2017, end: 20210207
  5. SPIRONOLACTONE [Concomitant]
     Active Substance: SPIRONOLACTONE
     Indication: Cardiac failure chronic
     Dosage: 25 MG, 1X/DAY AFTER BREAKFAST
     Route: 048
     Dates: start: 2017, end: 20210207
  6. FEBUXOSTAT [Concomitant]
     Active Substance: FEBUXOSTAT
     Indication: Hyperuricaemia
     Dosage: 20 MG, 1X/DAY AFTER BREALFAST
     Route: 048
     Dates: start: 2020, end: 20210207
  7. VONOPRAZAN FUMARATE [Concomitant]
     Active Substance: VONOPRAZAN FUMARATE
     Indication: Gastric ulcer
     Dosage: 20 MG, 1X/DAY AFTER BREAKFAST
     Route: 048
     Dates: start: 20200716, end: 20210207
  8. MAGNESIUM OXIDE [Concomitant]
     Active Substance: MAGNESIUM OXIDE
     Indication: Constipation
     Dosage: 250 MG, 2X/DAY AFTER BREAKFAST AND DINNER
     Route: 048
     Dates: end: 20210207
  9. SAMSCA [Concomitant]
     Active Substance: TOLVAPTAN
     Indication: Cardiac failure chronic
     Dosage: 7.5 MG, 1X/DAY AFTER BREAKFAST
     Route: 048
     Dates: start: 20201008, end: 20210207
  10. SENNOSIDES A AND B [Concomitant]
     Active Substance: SENNOSIDES A AND B
     Indication: Constipation
     Dosage: 24 MG, 1X/DAY BEFORE SLEEP
     Route: 048
     Dates: start: 20200730, end: 20210207

REACTIONS (1)
  - Ventricular tachycardia [Fatal]

NARRATIVE: CASE EVENT DATE: 20210208
